FAERS Safety Report 22131070 (Version 6)
Quarter: 2024Q2

REPORT INFORMATION
  Report Type: Spontaneous
  Country: PL (occurrence: PL)
  Receive Date: 20230323
  Receipt Date: 20240424
  Transmission Date: 20240716
  Serious: Yes (Hospitalization, Other)
  Sender: FDA-Public Use
  Company Number: PL-002147023-PHHY2014PL151881

PATIENT
  Age: 56 Year
  Sex: Female

DRUGS (20)
  1. SIMULECT [Suspect]
     Active Substance: BASILIXIMAB
     Indication: Immunosuppression
     Dosage: INDUCTION OF IMMUNOSUPPRESSION
     Route: 065
  2. SIMULECT [Suspect]
     Active Substance: BASILIXIMAB
     Indication: Transplant
     Dosage: INDUCTION OF IMMUNOSUPPRESSION
     Route: 065
  3. SIMULECT [Suspect]
     Active Substance: BASILIXIMAB
     Indication: Immunosuppressant drug therapy
     Dosage: UNK
     Route: 065
  4. SIMULECT [Suspect]
     Active Substance: BASILIXIMAB
     Indication: Prophylaxis against transplant rejection
  5. TACROLIMUS [Suspect]
     Active Substance: TACROLIMUS
     Indication: Immunosuppression
     Dosage: TARGET TROUGH CONCENTRATION 10-15 NG/ML
     Route: 065
  6. TACROLIMUS [Suspect]
     Active Substance: TACROLIMUS
     Indication: Transplant
     Dosage: TARGET TROUGH CONCENTRATION 10-15 NG/ML
     Route: 065
  7. TACROLIMUS [Suspect]
     Active Substance: TACROLIMUS
     Indication: Immunosuppressant drug therapy
     Dosage: TARGET TROUGH CONCENTRATION 10-15 NG/ML
     Route: 065
  8. TACROLIMUS [Suspect]
     Active Substance: TACROLIMUS
     Indication: Prophylaxis against transplant rejection
  9. TACROLIMUS [Suspect]
     Active Substance: TACROLIMUS
     Indication: Transplant rejection
  10. MYCOPHENOLATE MOFETIL [Suspect]
     Active Substance: MYCOPHENOLATE MOFETIL
     Indication: Immunosuppression
     Dosage: 2 G, QD
     Route: 065
  11. MYCOPHENOLATE MOFETIL [Suspect]
     Active Substance: MYCOPHENOLATE MOFETIL
     Indication: Transplant
  12. MYCOPHENOLATE MOFETIL [Suspect]
     Active Substance: MYCOPHENOLATE MOFETIL
     Indication: Immunosuppressant drug therapy
  13. MYCOPHENOLATE MOFETIL [Suspect]
     Active Substance: MYCOPHENOLATE MOFETIL
     Indication: Prophylaxis against transplant rejection
  14. PREDNISONE [Suspect]
     Active Substance: PREDNISONE
     Indication: Immunosuppression
     Dosage: 40 MG, QD, (20-40MG)
     Route: 065
  15. PREDNISONE [Suspect]
     Active Substance: PREDNISONE
     Indication: Transplant
  16. METHYLPREDNISOLONE [Suspect]
     Active Substance: METHYLPREDNISOLONE
     Indication: Immunosuppression
     Dosage: 1 DOSAGE FORM, QD
     Route: 065
  17. METHYLPREDNISOLONE [Suspect]
     Active Substance: METHYLPREDNISOLONE
     Indication: Transplant
     Dosage: (PREDNISONE EQUIVALENT 20-40 MG/DAY)
     Route: 065
  18. METHYLPREDNISOLONE [Suspect]
     Active Substance: METHYLPREDNISOLONE
     Indication: Prophylaxis against transplant rejection
  19. SULFAMETHOXAZOLE AND TRIMETHOPRIM [Concomitant]
     Active Substance: SULFAMETHOXAZOLE\TRIMETHOPRIM
     Indication: Infection prophylaxis
     Dosage: UNK
     Route: 065
  20. SULFAMETHOXAZOLE AND TRIMETHOPRIM [Concomitant]
     Active Substance: SULFAMETHOXAZOLE\TRIMETHOPRIM
     Indication: Antibiotic prophylaxis

REACTIONS (4)
  - Cytomegalovirus infection [Recovered/Resolved]
  - Tonsillitis [Recovered/Resolved]
  - Transplant rejection [Recovered/Resolved]
  - Product use in unapproved indication [Unknown]
